FAERS Safety Report 23163581 (Version 2)
Quarter: 2023Q4

REPORT INFORMATION
  Report Type: Spontaneous
  Country: TR (occurrence: TR)
  Receive Date: 20231109
  Receipt Date: 20231117
  Transmission Date: 20240109
  Serious: Yes (Death, Life-Threatening, Hospitalization, Other)
  Sender: FDA-Public Use
  Company Number: TR-MLMSERVICE-20231024-4622290-1

PATIENT
  Age: 3 Year
  Sex: Female
  Weight: 10 kg

DRUGS (25)
  1. TACROLIMUS [Suspect]
     Active Substance: TACROLIMUS
     Indication: Immunosuppressant drug therapy
  2. METHYLPREDNISOLONE [Suspect]
     Active Substance: METHYLPREDNISOLONE
     Indication: Immunosuppressant drug therapy
     Dosage: ON 1ST DAY
  3. BASILIXIMAB [Suspect]
     Active Substance: BASILIXIMAB
     Indication: Immunosuppressant drug therapy
  4. THYMOCYTE IMMUNE GLOBULIN NOS [Suspect]
     Active Substance: THYMOCYTE IMMUNE GLOBULIN NOS
     Indication: Immunosuppressant drug therapy
  5. INSULIN NOS [Concomitant]
     Active Substance: INSULIN NOS
     Indication: Blood glucose increased
  6. VALGANCICLOVIR [Concomitant]
     Active Substance: VALGANCICLOVIR
     Indication: Antiviral treatment
     Dosage: ENTERAL
  7. SODIUM BENZOATE [Concomitant]
     Active Substance: SODIUM BENZOATE
     Indication: Ammonia increased
  8. ORNITHINE ASPARTATE [Concomitant]
     Active Substance: ORNITHINE ASPARTATE
     Indication: Ammonia increased
  9. LEVOCARNITINE [Concomitant]
     Active Substance: LEVOCARNITINE
  10. PHENYLBUTYRIC ACID [Concomitant]
     Active Substance: PHENYLBUTYRIC ACID
     Indication: Ammonia increased
  11. FLUCONAZOLE [Concomitant]
     Active Substance: FLUCONAZOLE
     Indication: Antifungal prophylaxis
  12. DEXTROSE [Concomitant]
     Active Substance: DEXTROSE\DEXTROSE MONOHYDRATE
     Indication: Parenteral nutrition
  13. GANCICLOVIR [Concomitant]
     Active Substance: GANCICLOVIR
     Indication: Antiviral prophylaxis
  14. ENOXAPARIN [Concomitant]
     Active Substance: ENOXAPARIN
     Indication: Prophylaxis
  15. THIAMINE [Concomitant]
     Active Substance: THIAMINE
  16. PIPERACILLIN AND TAZOBACTAM [Concomitant]
     Active Substance: PIPERACILLIN SODIUM\TAZOBACTAM SODIUM
     Indication: Antibiotic therapy
  17. TEICOPLANIN [Concomitant]
     Active Substance: TEICOPLANIN
     Indication: Antibiotic therapy
  18. METHYLPREDNISOLONE [Suspect]
     Active Substance: METHYLPREDNISOLONE
     Indication: Immunosuppressant drug therapy
     Dosage: ON 5TH DAY
  19. METHYLPREDNISOLONE [Suspect]
     Active Substance: METHYLPREDNISOLONE
     Indication: Immunosuppressant drug therapy
     Dosage: CONTINUED TO TAPER AFTERWARDS
  20. METHYLPREDNISOLONE [Suspect]
     Active Substance: METHYLPREDNISOLONE
     Indication: Immunosuppressant drug therapy
     Dosage: ON 2ND DAY
  21. METHYLPREDNISOLONE [Suspect]
     Active Substance: METHYLPREDNISOLONE
     Indication: Immunosuppressant drug therapy
     Dosage: ON 3RD DAY
  22. METHYLPREDNISOLONE [Suspect]
     Active Substance: METHYLPREDNISOLONE
     Indication: Immunosuppressant drug therapy
     Dosage: ON 4TH DAY
  23. METHYLPREDNISOLONE [Suspect]
     Active Substance: METHYLPREDNISOLONE
     Indication: Immunosuppressant drug therapy
     Dosage: INCREASED BACK TO 10 MG/KG/DAY DUE TO REJECTION
  24. TACROLIMUS [Suspect]
     Active Substance: TACROLIMUS
     Indication: Immunosuppressant drug therapy
     Dosage: GRADUALLY INCREASED DOSE
  25. TEICOPLANIN [Concomitant]
     Active Substance: TEICOPLANIN
     Indication: Antibiotic therapy

REACTIONS (4)
  - Necrosis ischaemic [Fatal]
  - Gastrointestinal mucormycosis [Fatal]
  - Disseminated mucormycosis [Fatal]
  - Sepsis [Fatal]
